FAERS Safety Report 23286760 (Version 1)
Quarter: 2023Q4

REPORT INFORMATION
  Report Type: Report from Study
  Country: US (occurrence: US)
  Receive Date: 20231212
  Receipt Date: 20231212
  Transmission Date: 20240109
  Serious: Yes (Other)
  Sender: FDA-Public Use
  Company Number: US-ABBVIE-5527085

PATIENT
  Age: 74 Year
  Sex: Male

DRUGS (1)
  1. HUMIRA [Suspect]
     Active Substance: ADALIMUMAB
     Indication: Rheumatoid arthritis
     Dosage: CF?FORM STRENGTH: 40 MILLIGRAM
     Route: 058
     Dates: start: 20230616

REACTIONS (2)
  - Pleural effusion [Unknown]
  - Cardiac operation [Unknown]

NARRATIVE: CASE EVENT DATE: 20230503
